FAERS Safety Report 10403054 (Version 1)
Quarter: 2014Q3

REPORT INFORMATION
  Report Type: Spontaneous
  Country: US (occurrence: US)
  Receive Date: 20140822
  Receipt Date: 20140822
  Transmission Date: 20150326
  Serious: No
  Sender: FDA-Public Use
  Company Number: US-ASTRAZENECA-2013SE77523

PATIENT
  Age: 69 Year
  Sex: Female
  Weight: 55.8 kg

DRUGS (8)
  1. SYMBICORT [Suspect]
     Active Substance: BUDESONIDE\FORMOTEROL FUMARATE DIHYDRATE
     Indication: RESPIRATORY DISORDER
     Dosage: 80MCG/4.5 MCG, 2 PUFFS BID
     Route: 055
     Dates: start: 2012
  2. FLONASE [Concomitant]
     Active Substance: FLUTICASONE PROPIONATE
     Indication: HYPERSENSITIVITY
  3. SYMBICORT [Suspect]
     Active Substance: BUDESONIDE\FORMOTEROL FUMARATE DIHYDRATE
     Indication: CHEST DISCOMFORT
     Dosage: 80MCG/4.5 MCG, 2 PUFFS BID
     Route: 055
     Dates: start: 2012
  4. SYMBICORT [Suspect]
     Active Substance: BUDESONIDE\FORMOTEROL FUMARATE DIHYDRATE
     Indication: COUGH
     Dosage: 80MCG/4.5 MCG, 2 PUFFS BID
     Route: 055
     Dates: start: 2012
  5. SYMBICORT [Suspect]
     Active Substance: BUDESONIDE\FORMOTEROL FUMARATE DIHYDRATE
     Indication: COUGH
     Dosage: 80MCG/4.5 MCG, AS NEEDED
     Route: 055
  6. SYMBICORT [Suspect]
     Active Substance: BUDESONIDE\FORMOTEROL FUMARATE DIHYDRATE
     Indication: RESPIRATORY DISORDER
     Dosage: 80MCG/4.5 MCG, AS NEEDED
     Route: 055
  7. SYMBICORT [Suspect]
     Active Substance: BUDESONIDE\FORMOTEROL FUMARATE DIHYDRATE
     Indication: CHEST DISCOMFORT
     Dosage: 80MCG/4.5 MCG, AS NEEDED
     Route: 055
  8. UNSPECIFIED EYE DROPS [Concomitant]
     Active Substance: UNSPECIFIED INGREDIENT
     Indication: CATARACT

REACTIONS (3)
  - Off label use [Unknown]
  - Feeling jittery [Unknown]
  - Intentional product misuse [Unknown]
